FAERS Safety Report 18096513 (Version 1)
Quarter: 2020Q3

REPORT INFORMATION
  Report Type: Spontaneous
  Country: US (occurrence: US)
  Receive Date: 20200730
  Receipt Date: 20200730
  Transmission Date: 20201103
  Serious: No
  Sender: FDA-Public Use
  Company Number: US-EMERGENT BIOSOLUTIONS,-20000177SP

PATIENT
  Sex: Male

DRUGS (1)
  1. NARCAN [Suspect]
     Active Substance: NALOXONE HYDROCHLORIDE
     Indication: HYPERSENSITIVITY
     Route: 045

REACTIONS (1)
  - Unintentional use for unapproved indication [Unknown]
